FAERS Safety Report 5205773-6 (Version None)
Quarter: 2007Q1

REPORT INFORMATION
  Report Type: 
  Country: None (occurrence: None)
  Receive Date: 20070108
  Receipt Date: 20070108
  Transmission Date: 20070707
  Serious: Yes (Life-Threatening)
  Sender: FDA-Public Use
  Company Number: None

PATIENT
  Age: 53 Year
  Sex: Female
  Weight: 98.8842 kg

DRUGS (22)
  1. ARIXTRA [Suspect]
     Dosage: 7.5MG DAILY SQ
     Route: 058
     Dates: start: 20061207, end: 20061210
  2. GEODON [Concomitant]
  3. SYNTHROID [Concomitant]
  4. LIPITOR [Concomitant]
  5. PRINIVIL [Concomitant]
  6. REMERON [Concomitant]
  7. WELLBUTRIN XL [Concomitant]
  8. AVANDIA [Concomitant]
  9. PROTONIX [Concomitant]
  10. LEXAPRO [Concomitant]
  11. ULTRAM [Concomitant]
  12. FERROUS SULFATE TAB [Concomitant]
  13. COLACE [Concomitant]
  14. KLONOPIN [Concomitant]
  15. REGLAN [Concomitant]
  16. GLUCOPHAGE [Concomitant]
  17. ARANESP [Concomitant]
  18. REGULAR INSULIN [Concomitant]
  19. OXYCODONE HCL [Concomitant]
  20. PHENERGAN [Concomitant]
  21. BENADRYL [Concomitant]
  22. ACETAMINOPHEN [Concomitant]

REACTIONS (7)
  - ACTIVATED PARTIAL THROMBOPLASTIN TIME PROLONGED [None]
  - ANAEMIA [None]
  - CATHETER RELATED COMPLICATION [None]
  - COAGULATION TIME PROLONGED [None]
  - HYPOVOLAEMIA [None]
  - RENAL FAILURE ACUTE [None]
  - URETHRAL OBSTRUCTION [None]
